FAERS Safety Report 15696470 (Version 2)
Quarter: 2019Q1

REPORT INFORMATION
  Report Type: Spontaneous
  Country: US (occurrence: US)
  Receive Date: 20181206
  Receipt Date: 20190305
  Transmission Date: 20190417
  Serious: Yes (Other)
  Sender: FDA-Public Use
  Company Number: PHEH2018US051011

PATIENT
  Sex: Male

DRUGS (1)
  1. TASIGNA [Suspect]
     Active Substance: NILOTINIB
     Indication: CHRONIC MYELOID LEUKAEMIA
     Dosage: 150 MG, BID
     Route: 048
     Dates: start: 20151229, end: 20160615

REACTIONS (15)
  - Myalgia [Unknown]
  - Dyspnoea [Unknown]
  - Pyrexia [Unknown]
  - Cardiac flutter [Unknown]
  - Oropharyngeal pain [Unknown]
  - Arthralgia [Unknown]
  - Oedema peripheral [Unknown]
  - Swelling face [Unknown]
  - Craniocerebral injury [Unknown]
  - Hypophosphataemia [Unknown]
  - Amnesia [Unknown]
  - Urinary retention [Unknown]
  - Coronary artery disease [Unknown]
  - Asthenia [Unknown]
  - Cough [Unknown]
